FAERS Safety Report 5787957-1 (Version None)
Quarter: 2008Q2

REPORT INFORMATION
  Report Type: 
  Country: None (occurrence: None)
  Receive Date: 20080625
  Receipt Date: 20080623
  Transmission Date: 20081010
  Serious: Yes (Death)
  Sender: FDA-Public Use
  Company Number: B0526450A

PATIENT
  Age: 1 Day
  Sex: Male
  Weight: 2.2 kg

DRUGS (3)
  1. ZIDOVUDINE [Suspect]
     Indication: PROPHYLAXIS AGAINST HIV INFECTION
     Dosage: 12MG TWICE PER DAY
     Route: 048
     Dates: start: 20080613, end: 20080613
  2. LAMIVUDINE [Suspect]
     Indication: PROPHYLAXIS AGAINST HIV INFECTION
     Dosage: 6MG TWICE PER DAY
     Route: 048
     Dates: start: 20080613, end: 20080613
  3. NELFINAVIR [Suspect]
     Indication: PROPHYLAXIS AGAINST HIV INFECTION
     Dosage: 200MG TWICE PER DAY
     Route: 048
     Dates: start: 20080613, end: 20080613

REACTIONS (1)
  - SUDDEN INFANT DEATH SYNDROME [None]
